FAERS Safety Report 7776069-3 (Version None)
Quarter: 2011Q3

REPORT INFORMATION
  Report Type: 
  Country: None (occurrence: None)
  Receive Date: 20110925
  Receipt Date: 20110920
  Transmission Date: 20111222
  Serious: Yes (Hospitalization, Other)
  Sender: FDA-Public Use
  Company Number: US-AMGEN-USASP2011048586

PATIENT
  Sex: Female

DRUGS (5)
  1. CYCLOPHOSPHAMIDE [Concomitant]
     Indication: NON-HODGKIN'S LYMPHOMA
  2. NEULASTA [Suspect]
     Indication: NEUTROPENIA
     Dates: start: 20080101, end: 20080101
  3. DOXORUBICIN HCL [Concomitant]
     Indication: NON-HODGKIN'S LYMPHOMA
  4. PREDNISONE [Concomitant]
     Indication: NON-HODGKIN'S LYMPHOMA
  5. ONCOVIN [Concomitant]
     Indication: NON-HODGKIN'S LYMPHOMA

REACTIONS (7)
  - BEDRIDDEN [None]
  - MULTIPLE MYELOMA [None]
  - PLASMACYTOMA [None]
  - WEIGHT DECREASED [None]
  - BONE NEOPLASM [None]
  - NEUTROPENIA [None]
  - GENERAL PHYSICAL HEALTH DETERIORATION [None]
